FAERS Safety Report 9950882 (Version 1)
Quarter: 2014Q1

REPORT INFORMATION
  Report Type: Report from Study
  Country: US (occurrence: US)
  Receive Date: 20140304
  Receipt Date: 20140304
  Transmission Date: 20141002
  Serious: No
  Sender: FDA-Public Use
  Company Number: US-ABBVIE-13P-163-1068790-00

PATIENT
  Age: 52 Year
  Sex: Male

DRUGS (3)
  1. HUMIRA [Suspect]
     Indication: COLITIS ULCERATIVE
     Dates: start: 20120910
  2. 6-MERCAPTOPURINE [Concomitant]
     Indication: COLITIS ULCERATIVE
  3. METOPROLOL [Concomitant]
     Indication: ATRIAL FIBRILLATION
     Dosage: EXTENDED RELEASE
     Route: 048

REACTIONS (1)
  - Oropharyngeal pain [Not Recovered/Not Resolved]
